FAERS Safety Report 14951507 (Version 1)
Quarter: 2018Q2

REPORT INFORMATION
  Report Type: Spontaneous
  Country: CN (occurrence: CN)
  Receive Date: 20180530
  Receipt Date: 20180530
  Transmission Date: 20180711
  Serious: Yes (Hospitalization, Other)
  Sender: FDA-Public Use
  Company Number: CN-PFIZER INC-2018219394

PATIENT
  Age: 86 Year
  Sex: Male

DRUGS (1)
  1. TYGACIL [Suspect]
     Active Substance: TIGECYCLINE
     Indication: SEPSIS
     Dosage: 100 MG, TWICE A DAY
     Route: 041
     Dates: start: 20180326, end: 20180327

REACTIONS (1)
  - Subacute hepatic failure [Recovering/Resolving]

NARRATIVE: CASE EVENT DATE: 20180328
